FAERS Safety Report 18639355 (Version 1)
Quarter: 2020Q4

REPORT INFORMATION
  Report Type: Report from Study
  Country: CA (occurrence: CA)
  Receive Date: 20201219
  Receipt Date: 20201219
  Transmission Date: 20210114
  Serious: Yes (Other)
  Sender: FDA-Public Use
  Company Number: NVSC2020CA305257

PATIENT
  Sex: Female

DRUGS (1)
  1. BEOVU [Suspect]
     Active Substance: BROLUCIZUMAB-DBLL
     Indication: NEOVASCULAR AGE-RELATED MACULAR DEGENERATION
     Dosage: 0.05 ML (RIGHT EYE), ONCE/SINGLE
     Route: 031
     Dates: start: 20200824

REACTIONS (8)
  - Wrong technique in product usage process [Unknown]
  - Hypopyon [Unknown]
  - Eye haemorrhage [Unknown]
  - Intra-ocular injection complication [Unknown]
  - Blindness transient [Unknown]
  - Conjunctival hyperaemia [Unknown]
  - Eye injury [Unknown]
  - Anterior chamber fibrin [Unknown]
